FAERS Safety Report 13940055 (Version 2)
Quarter: 2017Q3

REPORT INFORMATION
  Report Type: Spontaneous
  Country: US (occurrence: US)
  Receive Date: 20170906
  Receipt Date: 20170921
  Transmission Date: 20171127
  Serious: Yes (Other)
  Sender: FDA-Public Use
  Company Number: US-AUROBINDO-AUR-APL-2017-39751

PATIENT
  Age: 26 Year
  Sex: Male

DRUGS (1)
  1. OXYCODONE [Suspect]
     Active Substance: OXYCODONE
     Indication: PAIN
     Dosage: UNK
     Route: 042

REACTIONS (4)
  - Foreign body reaction [Unknown]
  - Incorrect route of drug administration [Unknown]
  - Pulmonary hypertension [Unknown]
  - Drug abuse [Unknown]
